FAERS Safety Report 22140534 (Version 1)
Quarter: 2023Q1

REPORT INFORMATION
  Report Type: Spontaneous
  Country: NL (occurrence: NL)
  Receive Date: 20230327
  Receipt Date: 20230327
  Transmission Date: 20230418
  Serious: Yes (Other)
  Sender: FDA-Public Use
  Company Number: NL-MLMSERVICE-20230320-4174433-1

PATIENT
  Age: 55 Year
  Sex: Male

DRUGS (5)
  1. VENLAFAXINE [Suspect]
     Active Substance: VENLAFAXINE HYDROCHLORIDE
     Indication: Product used for unknown indication
     Dosage: UNK
     Route: 065
  2. METOPROLOL [Suspect]
     Active Substance: METOPROLOL
     Indication: Angina pectoris
     Dosage: UNK
     Route: 065
     Dates: start: 200904, end: 201002
  3. SIMVASTATIN [Concomitant]
     Active Substance: SIMVASTATIN
     Indication: Angina pectoris
     Dosage: UNK
     Route: 065
     Dates: start: 200904
  4. ASPIRIN [Concomitant]
     Active Substance: ASPIRIN
     Indication: Angina pectoris
     Dosage: UNK
     Route: 065
     Dates: start: 200904
  5. PLAVIX [Concomitant]
     Active Substance: CLOPIDOGREL BISULFATE
     Indication: Angina pectoris
     Dosage: UNK
     Route: 065

REACTIONS (6)
  - Anger [Unknown]
  - Bladder disorder [Unknown]
  - Condition aggravated [Unknown]
  - Frustration tolerance decreased [Unknown]
  - Hyperhidrosis [Unknown]
  - Sexual dysfunction [Unknown]
